FAERS Safety Report 8518590-6 (Version None)
Quarter: 2012Q3

REPORT INFORMATION
  Report Type: 
  Country: None (occurrence: None)
  Receive Date: 20120718
  Receipt Date: 20110707
  Transmission Date: 20120928
  Serious: No
  Sender: FDA-Public Use
  Company Number: US-BRISTOL-MYERS SQUIBB COMPANY-14146955

PATIENT
  Age: 64 Year
  Sex: Male
  Weight: 105 kg

DRUGS (7)
  1. COUMADIN [Suspect]
     Indication: ATRIAL FIBRILLATION
     Dosage: DOSE DECREASED TO 7.5 DAILY FOR 5 DAYS AND 5 MG DAILY FOR 2 DAYS; 2.5MG TABS
     Dates: start: 20071101
  2. COZAAR [Concomitant]
  3. METOPROLOL SUCCINATE [Concomitant]
  4. PREVACID [Concomitant]
  5. VITAMIN D [Concomitant]
  6. FISH OIL [Concomitant]
     Dosage: FREQUENCY: 4-5 TIMES A WEEK.
  7. RHINOCORT [Concomitant]

REACTIONS (3)
  - INTERNATIONAL NORMALISED RATIO INCREASED [None]
  - EPISTAXIS [None]
  - INTERNATIONAL NORMALISED RATIO FLUCTUATION [None]
